FAERS Safety Report 7602032-9 (Version None)
Quarter: 2011Q3

REPORT INFORMATION
  Report Type: 
  Country: None (occurrence: None)
  Receive Date: 20110711
  Receipt Date: 20110706
  Transmission Date: 20111222
  Serious: Yes (Other)
  Sender: FDA-Public Use
  Company Number: CN-PFIZER INC-2011125623

PATIENT
  Age: 74 Year
  Sex: Male

DRUGS (2)
  1. SUTENT [Suspect]
     Indication: RENAL CELL CARCINOMA
     Dosage: 50 MG, 1X/DAY
     Route: 048
  2. SUTENT [Suspect]
     Dosage: 37.5 MG, 1X/DAY
     Route: 048

REACTIONS (2)
  - HYPERTENSION [None]
  - APHAGIA [None]
